FAERS Safety Report 25462400 (Version 1)
Quarter: 2025Q2

REPORT INFORMATION
  Report Type: Report from Study
  Country: US (occurrence: US)
  Receive Date: 20250620
  Receipt Date: 20250620
  Transmission Date: 20250717
  Serious: Yes (Other)
  Sender: TAKEDA
  Company Number: US-TAKEDA-2025TUS031727

PATIENT
  Sex: Female

DRUGS (11)
  1. PONATINIB [Suspect]
     Active Substance: PONATINIB
     Indication: Acute lymphocytic leukaemia
     Dosage: 15 MILLIGRAM, QD
  2. PONATINIB [Suspect]
     Active Substance: PONATINIB
     Dosage: 15 MILLIGRAM, QD
  3. BENADRYL [Suspect]
     Active Substance: DIPHENHYDRAMINE HYDROCHLORIDE
     Indication: Product used for unknown indication
  4. SENNA LAXATIVE [Concomitant]
     Active Substance: SENNOSIDES
  5. ALPRAZOLAM ER [Concomitant]
     Active Substance: ALPRAZOLAM
  6. FLUCONAZOLE [Concomitant]
     Active Substance: FLUCONAZOLE
  7. OXYCODONE HYDROCHLORIDE [Concomitant]
     Active Substance: OXYCODONE HYDROCHLORIDE
  8. ZOFRAN [Concomitant]
     Active Substance: ONDANSETRON HYDROCHLORIDE
  9. ASPIRIN [Concomitant]
     Active Substance: ASPIRIN
  10. ACYCLOVIR [Concomitant]
     Active Substance: ACYCLOVIR
  11. COMPAZINE [Concomitant]
     Active Substance: PROCHLORPERAZINE MALEATE

REACTIONS (4)
  - Heart rate increased [Unknown]
  - Product use issue [Unknown]
  - Dizziness [Unknown]
  - Dyspnoea [Unknown]
